FAERS Safety Report 23974581 (Version 1)
Quarter: 2024Q2

REPORT INFORMATION
  Report Type: Spontaneous
  Country: PL (occurrence: PL)
  Receive Date: 20240614
  Receipt Date: 20240614
  Transmission Date: 20240716
  Serious: Yes (Other)
  Sender: FDA-Public Use
  Company Number: PL-JNJFOC-20240614739

PATIENT
  Age: 67 Year
  Sex: Male

DRUGS (9)
  1. SPRAVATO [Suspect]
     Active Substance: ESKETAMINE
     Indication: Depression
  2. SPRAVATO [Suspect]
     Active Substance: ESKETAMINE
  3. SPRAVATO [Suspect]
     Active Substance: ESKETAMINE
  4. SPRAVATO [Suspect]
     Active Substance: ESKETAMINE
  5. DULOXETINE [Concomitant]
     Active Substance: DULOXETINE
     Dosage: (UP TO 120 MG, 6 MONTHS, NO REMISSION)
  6. SERTRALINE [Concomitant]
     Active Substance: SERTRALINE HYDROCHLORIDE
     Dosage: (UP TO 200 MG, 6 MONTHS, NO RESPONSE),
  7. VENLAFAXINE [Concomitant]
     Active Substance: VENLAFAXINE HYDROCHLORIDE
     Dosage: (UP TO 225 MG, 2 MONTHS, POOR TOLERANCE)
  8. VORTIOXETINE [Concomitant]
     Active Substance: VORTIOXETINE
     Dosage: ( UP TO 20 MG, 12 MONTHS, NO RESPONSE)
  9. DULOXETINE [Concomitant]
     Active Substance: DULOXETINE
     Dates: start: 202401

REACTIONS (3)
  - Blood pressure increased [Recovering/Resolving]
  - Sedation [Recovered/Resolved]
  - Dissociation [Unknown]
